FAERS Safety Report 20564442 (Version 2)
Quarter: 2022Q2

REPORT INFORMATION
  Report Type: Spontaneous
  Country: US (occurrence: US)
  Receive Date: 20220308
  Receipt Date: 20220407
  Transmission Date: 20220721
  Serious: Yes (Other)
  Sender: FDA-Public Use
  Company Number: US-CELLTRION INC.-2022US002559

PATIENT

DRUGS (7)
  1. TRUXIMA [Suspect]
     Active Substance: RITUXIMAB-ABBS
     Indication: Glomerulonephritis
     Dosage: 800 MG, ONCE WEEKLY FOR 4 DOSES
     Dates: start: 20201112
  2. TRUXIMA [Suspect]
     Active Substance: RITUXIMAB-ABBS
     Dosage: 800 MG, ONCE WEEKLY FOR 4 DOSES
     Dates: start: 20201119
  3. TRUXIMA [Suspect]
     Active Substance: RITUXIMAB-ABBS
     Dosage: 800 MG, ONCE WEEKLY FOR 4 DOSES
     Dates: start: 20201127
  4. TRUXIMA [Suspect]
     Active Substance: RITUXIMAB-ABBS
     Dosage: 800 MG, ONCE WEEKLY FOR 4 DOSES
     Dates: start: 20201204
  5. TRUXIMA [Suspect]
     Active Substance: RITUXIMAB-ABBS
     Dosage: 500 MG, DAY 1 AND 15
     Dates: start: 20210430
  6. TRUXIMA [Suspect]
     Active Substance: RITUXIMAB-ABBS
     Dosage: 500 MG, DAY 1 AND 15
     Dates: start: 20210514
  7. TRUXIMA [Suspect]
     Active Substance: RITUXIMAB-ABBS
     Dosage: 500 MG, ONCE EVERY 6 MONTHS
     Dates: start: 20211029

REACTIONS (2)
  - Glomerulonephritis [Unknown]
  - Off label use [Unknown]
